FAERS Safety Report 18918107 (Version 2)
Quarter: 2021Q3

REPORT INFORMATION
  Report Type: Report from Study
  Country: US (occurrence: US)
  Receive Date: 20210219
  Receipt Date: 20210902
  Transmission Date: 20211014
  Serious: Yes (Other)
  Sender: FDA-Public Use
  Company Number: US-TAKEDA-US202033810

PATIENT
  Sex: Female

DRUGS (1)
  1. HUMAN NORMAL IMMUNOGLOBULIN; LIQUID [Suspect]
     Active Substance: HUMAN IMMUNOGLOBULIN G
     Indication: PRIMARY IMMUNODEFICIENCY SYNDROME
     Dosage: 10 GRAM, 1X/WEEK
     Route: 058

REACTIONS (7)
  - Injection site pain [Unknown]
  - Joint injury [Unknown]
  - Fatigue [Unknown]
  - Needle issue [Unknown]
  - Meniscus injury [Unknown]
  - Depression [Unknown]
  - Nervousness [Unknown]
